FAERS Safety Report 19233436 (Version 4)
Quarter: 2021Q2

REPORT INFORMATION
  Report Type: Report from Study
  Country: MX (occurrence: MX)
  Receive Date: 20210507
  Receipt Date: 20210601
  Transmission Date: 20210717
  Serious: Yes (Death, Hospitalization, Other)
  Sender: FDA-Public Use
  Company Number: MX-BAYER-2021-105631

PATIENT
  Age: 19 Year
  Sex: Female

DRUGS (4)
  1. NEXAVAR [Suspect]
     Active Substance: SORAFENIB
     Indication: HEPATOCELLULAR CARCINOMA
     Dosage: 400 MG, BID
     Route: 048
     Dates: start: 20200603
  2. NEXAVAR [Suspect]
     Active Substance: SORAFENIB
     Indication: HEPATOCELLULAR CARCINOMA
     Dosage: 200 MG, BID
     Route: 048
  3. NEXAVAR [Suspect]
     Active Substance: SORAFENIB
     Indication: HEPATOCELLULAR CARCINOMA
     Dosage: DAILY DOSE 600 MG (2 TABLETS IN THE MORNING AND 1 IN AFTERNOON)
     Route: 048
     Dates: end: 20210520
  4. HEPA?MERZ [ORNITHINE ASPARTATE] [Concomitant]
     Indication: HYPERAMMONAEMIA
     Dosage: 1 PACKET EVERY 12 HOURS
     Route: 048
     Dates: start: 20210502, end: 20210523

REACTIONS (34)
  - Oedema peripheral [Recovering/Resolving]
  - Alopecia [Not Recovered/Not Resolved]
  - Pyrexia [Recovered/Resolved]
  - Pain in extremity [Recovering/Resolving]
  - Tremor [None]
  - Oedema peripheral [None]
  - Death [Fatal]
  - Diarrhoea [Recovered/Resolved with Sequelae]
  - Urticaria [Not Recovered/Not Resolved]
  - Gait disturbance [Recovering/Resolving]
  - Erythema [None]
  - Urinary tract infection [None]
  - Off label use [None]
  - Hepatic encephalopathy [None]
  - Metastases to lung [None]
  - Hepatic encephalopathy [Recovering/Resolving]
  - Erythema [Recovering/Resolving]
  - Diarrhoea [Not Recovered/Not Resolved]
  - Metastasis [None]
  - Gastrointestinal motility disorder [None]
  - Abdominal distension [None]
  - Fatigue [Not Recovered/Not Resolved]
  - Drug hypersensitivity [None]
  - Abnormal loss of weight [Recovering/Resolving]
  - Vomiting [Not Recovered/Not Resolved]
  - Vomiting [Recovered/Resolved]
  - Vomiting [None]
  - Tremor [None]
  - Somnolence [Not Recovered/Not Resolved]
  - Weight decreased [None]
  - Fatigue [None]
  - Disorientation [Recovering/Resolving]
  - Fall [Recovered/Resolved]
  - Nail discolouration [Not Recovered/Not Resolved]

NARRATIVE: CASE EVENT DATE: 202006
